FAERS Safety Report 5466288-3 (Version None)
Quarter: 2007Q3

REPORT INFORMATION
  Report Type: 
  Country: None (occurrence: None)
  Receive Date: 20070919
  Receipt Date: 20070903
  Transmission Date: 20080115
  Serious: Yes (Hospitalization)
  Sender: FDA-Public Use
  Company Number: GXKR2007ES07722

PATIENT
  Age: 73 Year
  Sex: Female

DRUGS (1)
  1. RIFAMPICIN+ISONIAZID+PYRAZINAMIDE+ETHAMBUTOL (NGX)(ETHAMBUTOL DIHYDROC [Suspect]
     Indication: PULMONARY TUBERCULOSIS
     Dosage: ORAL
     Route: 048
     Dates: start: 20070101, end: 20070101

REACTIONS (3)
  - NAUSEA [None]
  - NEURITIS [None]
  - VOMITING [None]
